FAERS Safety Report 6127134-8 (Version None)
Quarter: 2009Q1

REPORT INFORMATION
  Report Type: 
  Country: None (occurrence: None)
  Receive Date: 20090320
  Receipt Date: 20090309
  Transmission Date: 20090719
  Serious: Yes (Death, Life-Threatening, Hospitalization, Other)
  Sender: FDA-Public Use
  Company Number: GB-PFIZER INC-2009185633

PATIENT

DRUGS (3)
  1. SOMATROPIN [Suspect]
     Dosage: 0.3 MG, 1X/DAY
     Route: 058
     Dates: start: 20020301, end: 20031001
  2. HYDROCORTISON [Concomitant]
  3. DESMOPRESSIN [Concomitant]

REACTIONS (2)
  - GERM CELL CANCER [None]
  - NEOPLASM RECURRENCE [None]
